FAERS Safety Report 9093073 (Version 1)
Quarter: 2013Q1

REPORT INFORMATION
  Report Type: Report from Study
  Country: US (occurrence: US)
  Receive Date: 20130131
  Receipt Date: 20130131
  Transmission Date: 20140127
  Serious: No
  Sender: FDA-Public Use
  Company Number: US-ABBOTT-12P-163-1002458-00

PATIENT
  Age: 38 Year
  Sex: Male

DRUGS (4)
  1. HUMIRA [Suspect]
     Indication: PSORIASIS
     Dates: start: 20120517
  2. ELIDEL [Concomitant]
     Indication: RASH
     Dosage: CREAM
  3. DOVONEX [Concomitant]
     Indication: PSORIASIS
  4. ULTRAVATE [Concomitant]
     Indication: PSORIASIS

REACTIONS (1)
  - Fatigue [Recovered/Resolved]
